FAERS Safety Report 8059370-8 (Version None)
Quarter: 2012Q1

REPORT INFORMATION
  Report Type: 
  Country: None (occurrence: None)
  Receive Date: 20120119
  Receipt Date: 20120119
  Transmission Date: 20120608
  Serious: Yes (Other)
  Sender: FDA-Public Use
  Company Number: None

PATIENT
  Sex: Male
  Weight: 23.9499 kg

DRUGS (2)
  1. VYVANSE [Suspect]
     Indication: ATTENTION DEFICIT/HYPERACTIVITY DISORDER
     Dosage: 20 MG  ONCE ORAL
     Route: 048
     Dates: start: 20111123, end: 20111220
  2. VYVANSE [Suspect]
     Indication: AUTISM
     Dosage: 20 MG  ONCE ORAL
     Route: 048
     Dates: start: 20111123, end: 20111220

REACTIONS (14)
  - CRYING [None]
  - DECREASED INTEREST [None]
  - DECREASED APPETITE [None]
  - MOOD SWINGS [None]
  - AGITATION [None]
  - SOCIAL AVOIDANT BEHAVIOUR [None]
  - PANIC ATTACK [None]
  - HALLUCINATION, VISUAL [None]
  - DYSURIA [None]
  - DYSKINESIA [None]
  - ANXIETY [None]
  - ABNORMAL BEHAVIOUR [None]
  - SCREAMING [None]
  - CONVULSION [None]
